FAERS Safety Report 8112664-X (Version None)
Quarter: 2012Q1

REPORT INFORMATION
  Report Type: 
  Country: None (occurrence: None)
  Receive Date: 20120131
  Receipt Date: 20120118
  Transmission Date: 20120608
  Serious: Yes (Death, Hospitalization, Other)
  Sender: FDA-Public Use
  Company Number: 2012MA000847

PATIENT
  Sex: Male
  Weight: 70.3075 kg

DRUGS (11)
  1. ALBUTEROL [Concomitant]
  2. LORAZEPAM [Concomitant]
  3. M.V.I. [Concomitant]
  4. ASPIRIN [Concomitant]
  5. PROTONIX [Concomitant]
  6. PEN-V [Concomitant]
  7. DIGOXIN [Suspect]
     Dosage: 0.25 MG;QD;PO
     Route: 048
     Dates: start: 20070503, end: 20071009
  8. ATROVENT [Concomitant]
  9. ARICEPT [Concomitant]
  10. FUROSEMIDE [Concomitant]
  11. SOLU-MEDROL [Concomitant]

REACTIONS (63)
  - FALL [None]
  - WEIGHT DECREASED [None]
  - HYPOPHAGIA [None]
  - ACUTE RESPIRATORY DISTRESS SYNDROME [None]
  - RENAL FAILURE ACUTE [None]
  - MITRAL VALVE INCOMPETENCE [None]
  - DIVERTICULITIS [None]
  - DEVICE DISLOCATION [None]
  - RENAL CYST [None]
  - SPLENIC CYST [None]
  - DEMENTIA [None]
  - ELECTROCARDIOGRAM ABNORMAL [None]
  - TACHYCARDIA [None]
  - BLOOD PRESSURE DECREASED [None]
  - BLOOD GLUCOSE INCREASED [None]
  - QRS AXIS ABNORMAL [None]
  - PULMONARY HYPERTENSION [None]
  - ATELECTASIS [None]
  - SPLENOMEGALY [None]
  - MITRAL VALVE CALCIFICATION [None]
  - LACERATION [None]
  - URINARY TRACT INFECTION [None]
  - COLONIC POLYP [None]
  - DISORIENTATION [None]
  - PRESYNCOPE [None]
  - AORTIC DISORDER [None]
  - SPLENIC LESION [None]
  - SYNCOPE [None]
  - GASTROINTESTINAL HAEMORRHAGE [None]
  - AORTIC VALVE REPLACEMENT [None]
  - HAEMORRHAGE INTRACRANIAL [None]
  - CHEST X-RAY ABNORMAL [None]
  - VENTRICULAR EXTRASYSTOLES [None]
  - HAEMORRHAGE URINARY TRACT [None]
  - GENITAL HAEMORRHAGE [None]
  - ELECTROCARDIOGRAM POOR R-WAVE PROGRESSION [None]
  - MYOCARDIAL INFARCTION [None]
  - TRICUSPID VALVE INCOMPETENCE [None]
  - SUBDURAL HAEMATOMA [None]
  - MEMORY IMPAIRMENT [None]
  - CARDIAC FAILURE CONGESTIVE [None]
  - HOSPICE CARE [None]
  - HYPOKALAEMIA [None]
  - PYREXIA [None]
  - BRAIN SCAN ABNORMAL [None]
  - STREPTOCOCCAL INFECTION [None]
  - BLOOD CALCIUM DECREASED [None]
  - ATRIAL FIBRILLATION [None]
  - HYPOVOLAEMIA [None]
  - OSTEOARTHRITIS [None]
  - LABORATORY TEST ABNORMAL [None]
  - AORTIC STENOSIS [None]
  - BLOOD SODIUM DECREASED [None]
  - BUNDLE BRANCH BLOCK LEFT [None]
  - ASTHENIA [None]
  - HYPOTENSION [None]
  - DEATH OF RELATIVE [None]
  - COLON CANCER [None]
  - ANAEMIA [None]
  - HAEMATOCHEZIA [None]
  - FAILURE TO THRIVE [None]
  - HAEMORRHAGIC ANAEMIA [None]
  - PLATELET COUNT DECREASED [None]
